FAERS Safety Report 8610847-3 (Version None)
Quarter: 2012Q3

REPORT INFORMATION
  Report Type: 
  Country: None (occurrence: None)
  Receive Date: 20120822
  Receipt Date: 20120720
  Transmission Date: 20120928
  Serious: Yes (Hospitalization, Other)
  Sender: FDA-Public Use
  Company Number: JP-009507513-2012SP032707

PATIENT

DRUGS (22)
  1. PEG-INTRON [Suspect]
     Dosage: 1.5MCG/KG
     Route: 058
     Dates: start: 20120424
  2. REBETOL [Suspect]
     Indication: HEPATITIS C
     Dosage: 800 MG, QD
     Route: 048
     Dates: start: 20120215, end: 20120228
  3. TELAVIC [Suspect]
     Indication: HEPATITIS C
     Route: 048
     Dates: start: 20120328
  4. PEG-INTRON [Suspect]
     Dosage: 1.5MCG/KG/WEEK
     Route: 058
     Dates: start: 20120328
  5. REBETOL [Suspect]
     Dosage: 200 MG, QD
     Route: 048
     Dates: start: 20120403
  6. REBETOL [Suspect]
     Dosage: 400 MG, QD
     Route: 048
     Dates: start: 20120229
  7. FEROTYM [Concomitant]
     Indication: IRON DEFICIENCY ANAEMIA
     Route: 048
  8. LIVALO [Concomitant]
     Indication: HYPERLIPIDAEMIA
     Route: 048
  9. MUCODYNE [Concomitant]
     Indication: ASTHMA
     Route: 048
  10. MOTILIUM [Concomitant]
     Indication: NAUSEA
     Route: 048
  11. EPADEL S [Concomitant]
     Indication: HYPERLIPIDAEMIA
     Route: 048
  12. CLARITIN REDITABS [Concomitant]
     Indication: PROPHYLAXIS
     Route: 048
  13. INVESTIGATIONAL DRUG (UNSPECIFIED) [Suspect]
     Indication: HEPATITIS C
     Dosage: 2250 MG, QD
     Route: 048
     Dates: start: 20120215, end: 20120416
  14. REBETOL [Suspect]
     Route: 048
     Dates: start: 20120328, end: 20120410
  15. REBETOL [Suspect]
     Route: 048
     Dates: start: 20120411
  16. TELAVIC [Suspect]
     Route: 048
     Dates: start: 20120417
  17. VANCOMYCIN [Concomitant]
     Indication: PRODUCT USED FOR UNKNOWN INDICATION
  18. FEROTYM [Concomitant]
     Route: 048
  19. PEG-INTRON [Suspect]
     Indication: HEPATITIS C
     Dosage: 1.5MCG/KG/WEEK
     Route: 058
     Dates: start: 20120215, end: 20120410
  20. INVESTIGATIONAL DRUG (UNSPECIFIED) [Suspect]
     Dosage: 1500 MG, QD
     Route: 048
     Dates: start: 20120417
  21. TELAVIC [Suspect]
     Route: 048
     Dates: start: 20120215, end: 20120416
  22. VANCOMYCIN [Concomitant]
     Dosage: DRUG FORM : UNKNOWN
     Route: 042
     Dates: start: 20120423, end: 20120429

REACTIONS (6)
  - OEDEMA DUE TO HEPATIC DISEASE [None]
  - RENAL IMPAIRMENT [None]
  - CELLULITIS [None]
  - ASCITES [None]
  - RASH [None]
  - ANAEMIA [None]
